FAERS Safety Report 9412388 (Version 3)
Quarter: 2013Q3

REPORT INFORMATION
  Report Type: Spontaneous
  Country: CA (occurrence: CA)
  Receive Date: 20130722
  Receipt Date: 20130909
  Transmission Date: 20140515
  Serious: Yes (Hospitalization)
  Sender: FDA-Public Use
  Company Number: CA-AMGEN-CANSP2013010356

PATIENT
  Age: 73 Year
  Sex: Female
  Weight: 46.26 kg

DRUGS (22)
  1. PROLIA [Suspect]
     Indication: OSTEOPOROSIS POSTMENOPAUSAL
     Dosage: 60 MG, Q6MO
     Route: 058
     Dates: start: 20120801, end: 20130102
  2. ENBREL [Concomitant]
     Indication: RHEUMATOID ARTHRITIS
     Dosage: 50 MG, QWK
     Route: 058
     Dates: start: 201303, end: 20130425
  3. METHOTREXATE [Concomitant]
     Indication: RHEUMATOID ARTHRITIS
     Dosage: 125 MG, QWK
     Route: 058
     Dates: end: 20130425
  4. CELEBREX [Concomitant]
     Indication: RHEUMATOID ARTHRITIS
     Dosage: 200 MG, BID
     Route: 048
  5. ENDOCET [Concomitant]
     Indication: SPINAL COLUMN STENOSIS
     Dosage: 2 TABS, 5 TO 25 MG, Q6H
     Route: 048
  6. OXYNEO [Concomitant]
     Indication: SPINAL COLUMN STENOSIS
     Dosage: 30 MG, 1 TABLET Q12H
     Route: 048
  7. AMITRIPTYLINE [Concomitant]
     Indication: SLEEP DISORDER
     Dosage: 10 MG, ONCE, QHS
     Route: 048
     Dates: start: 20130718
  8. AMITRIPTYLINE [Concomitant]
     Indication: PAIN
  9. AMLODIPINE [Concomitant]
     Indication: HYPERTENSION
     Dosage: 5 MG, QD
     Route: 048
  10. ATORVASTATIN [Concomitant]
     Indication: HYPERLIPIDAEMIA
     Dosage: 10 MG, QD
     Route: 048
  11. ROCALTROL [Concomitant]
     Indication: OSTEOPOROSIS
     Dosage: 0.25 MUG, QD
  12. SENOKOT                            /00142201/ [Concomitant]
     Dosage: 8.6 MG, 1-4 TABS, QD, QHS, PRN
     Route: 048
  13. CYMBALTA [Concomitant]
     Indication: DEPRESSION
     Dosage: 30 MG, 1 TAB, QD
     Route: 048
  14. CYMBALTA [Concomitant]
     Indication: PAIN
  15. FOLIC ACID [Concomitant]
     Indication: RHEUMATOID ARTHRITIS
     Dosage: 5 MG, 2 TABS, QWK
     Route: 048
  16. SOFLAX                             /00061602/ [Concomitant]
     Indication: CONSTIPATION
     Dosage: 100 MG, 1 CAP, BID
     Route: 048
  17. CLONAZEPAM [Concomitant]
     Indication: ANXIETY
     Dosage: 0.5 MG, BID
     Route: 048
  18. LANSOPRAZOLE [Concomitant]
     Indication: GASTROINTESTINAL DISORDER
     Dosage: 30 MG, QD
     Route: 048
  19. LOSARTAN + HIDROCLOROTIAZIDA [Concomitant]
     Indication: HYPERTENSION
     Dosage: 50/12.5 MG, QD
  20. CALCIUM [Concomitant]
     Indication: OSTEOPOROSIS
     Dosage: 1 TAB, QD
     Route: 048
  21. MULTIVITAMIN                       /00097801/ [Concomitant]
     Dosage: EACH ONCE A DAY, QD
     Route: 048
  22. IMMUNOSUPPRESSANTS [Concomitant]

REACTIONS (6)
  - Osteomyelitis [Recovered/Resolved]
  - Gingivitis [Not Recovered/Not Resolved]
  - Clostridium difficile colitis [Recovered/Resolved]
  - White blood cell count decreased [Unknown]
  - Neutrophil count decreased [Unknown]
  - Osteonecrosis of jaw [Unknown]
